FAERS Safety Report 7954055-8 (Version None)
Quarter: 2011Q4

REPORT INFORMATION
  Report Type: 
  Country: None (occurrence: None)
  Receive Date: 20111202
  Receipt Date: 20111128
  Transmission Date: 20120403
  Serious: Yes (Other)
  Sender: FDA-Public Use
  Company Number: US-AMGEN-USASP2011062677

PATIENT
  Age: 63 Year
  Sex: Female

DRUGS (1)
  1. ENBREL [Suspect]
     Indication: PSORIATIC ARTHROPATHY
     Dosage: 50 MG, QWK
     Dates: start: 20070420

REACTIONS (5)
  - MUSCLE TWITCHING [None]
  - BACK PAIN [None]
  - MUSCLE SPASMS [None]
  - NASOPHARYNGITIS [None]
  - MUSCLE TIGHTNESS [None]
